FAERS Safety Report 17423850 (Version 1)
Quarter: 2020Q1

REPORT INFORMATION
  Report Type: Report from Study
  Country: GB (occurrence: GB)
  Receive Date: 20200217
  Receipt Date: 20200217
  Transmission Date: 20200409
  Serious: Yes (Hospitalization)
  Sender: FDA-Public Use
  Company Number: GB-ROCHE-2543456

PATIENT
  Age: 57 Year
  Sex: Male
  Weight: 101 kg

DRUGS (1)
  1. TOCILIZUMAB. [Suspect]
     Active Substance: TOCILIZUMAB
     Indication: RHEUMATOID ARTHRITIS
     Route: 065
     Dates: start: 20141219, end: 20161222

REACTIONS (4)
  - Pleural effusion [Unknown]
  - Pulmonary air leakage [Unknown]
  - Infectious pleural effusion [Unknown]
  - Acute kidney injury [Unknown]

NARRATIVE: CASE EVENT DATE: 20170201
